FAERS Safety Report 5024701-X (Version None)
Quarter: 2006Q2

REPORT INFORMATION
  Report Type: 
  Country: None (occurrence: None)
  Receive Date: 20060426
  Receipt Date: 20060209
  Transmission Date: 20061013
  Serious: Yes (Other)
  Sender: FDA-Public Use
  Company Number: 2006021512

PATIENT
  Age: 56 Year
  Sex: Female
  Weight: 70.3075 kg

DRUGS (5)
  1. LYRICA [Suspect]
     Indication: NEURALGIA
     Dosage: 50  MG(50 MG, 1 IN 1 D)
     Dates: start: 20051201
  2. SPIRONOLACTONE [Concomitant]
  3. PHENTERMINE [Concomitant]
  4. ESTROPIPATE [Concomitant]
  5. ENTEX (GUAIFENESIN, PHENYLEPHRINE HYDROCHLORIDE, PHENYLPROPANOLAMINE H [Concomitant]

REACTIONS (4)
  - BODY HEIGHT DECREASED [None]
  - INCREASED APPETITE [None]
  - OEDEMA [None]
  - WEIGHT INCREASED [None]
